FAERS Safety Report 9163129 (Version 1)
Quarter: 2013Q1

REPORT INFORMATION
  Report Type: Spontaneous
  Country: US (occurrence: None)
  Receive Date: 20130313
  Receipt Date: 20130313
  Transmission Date: 20140127
  Serious: No
  Sender: FDA-Public Use
  Company Number: None

PATIENT
  Age: 88 Year
  Sex: Female
  Weight: 56.7 kg

DRUGS (1)
  1. TOVIAZ [Suspect]
     Indication: POLLAKIURIA
     Dosage: 1 TABLET DAILY - AM- PO
     Route: 048
     Dates: start: 20130308, end: 20130312

REACTIONS (2)
  - Dizziness [None]
  - Nocturia [None]
